FAERS Safety Report 11651125 (Version 2)
Quarter: 2015Q4

REPORT INFORMATION
  Report Type: Spontaneous
  Country: US (occurrence: US)
  Receive Date: 20151021
  Receipt Date: 20151022
  Transmission Date: 20160304
  Serious: No
  Sender: FDA-Public Use
  Company Number: US-PURDUE-USA-2015-0122736

PATIENT
  Age: 65 Year
  Sex: Female
  Weight: 68 kg

DRUGS (2)
  1. OXYCODONE HCL TABLETS (91-490) [Suspect]
     Active Substance: OXYCODONE HYDROCHLORIDE
     Indication: PAIN
     Dosage: 10 MG, TID
     Route: 048
  2. OXYCODONE HCL TABLETS (91-490) [Suspect]
     Active Substance: OXYCODONE HYDROCHLORIDE
     Dosage: 10 MG, PRN
     Route: 048

REACTIONS (1)
  - Drug ineffective [Unknown]
